FAERS Safety Report 8934482 (Version 1)
Quarter: 2012Q4

REPORT INFORMATION
  Report Type: 
  Country: US (occurrence: US)
  Receive Date: 20121129
  Receipt Date: 20121129
  Transmission Date: 20130627
  Serious: No
  Sender: FDA-Public Use
  Company Number: US-GLAXOSMITHKLINE-A0948836A

PATIENT
  Age: 47 Year
  Sex: Female
  Weight: 56.8 kg

DRUGS (2)
  1. FLOVENT [Suspect]
     Indication: PRODUCT ADHESION ISSUE
     Dosage: 10SPR Per day
     Route: 061
     Dates: start: 20111011, end: 20111011
  2. LIDODERM PATCH [Concomitant]

REACTIONS (3)
  - Drug ineffective [Unknown]
  - Off label use [Recovered/Resolved]
  - Drug administration error [Recovered/Resolved]
